FAERS Safety Report 6331763-6 (Version None)
Quarter: 2009Q3

REPORT INFORMATION
  Report Type: 
  Country: None (occurrence: None)
  Receive Date: 20090826
  Receipt Date: 20090817
  Transmission Date: 20100115
  Serious: Yes (Hospitalization)
  Sender: FDA-Public Use
  Company Number: SPV1-2009-01682

PATIENT
  Age: 16 Month
  Sex: Male

DRUGS (2)
  1. VYVANSE [Suspect]
     Dosage: 70 MG, ONE DOSE, ORAL
     Route: 048
     Dates: start: 20090311, end: 20090311
  2. QUETIAPINE FUMARATE [Suspect]
     Dosage: 25 MG, ONE DOSE, ORAL
     Route: 048
     Dates: start: 20090311, end: 20090311

REACTIONS (12)
  - ABNORMAL BEHAVIOUR [None]
  - ACCIDENTAL DRUG INTAKE BY CHILD [None]
  - AGITATION [None]
  - ANION GAP INCREASED [None]
  - BALANCE DISORDER [None]
  - DRUG SCREEN POSITIVE [None]
  - DYSKINESIA [None]
  - HYPERTENSION [None]
  - PUPILLARY REFLEX IMPAIRED [None]
  - RESTLESSNESS [None]
  - STARING [None]
  - TACHYCARDIA [None]
